FAERS Safety Report 9298871 (Version 1)
Quarter: 2013Q2

REPORT INFORMATION
  Report Type: Spontaneous
  Country: US (occurrence: US)
  Receive Date: 20130520
  Receipt Date: 20130520
  Transmission Date: 20140414
  Serious: Yes (Hospitalization)
  Sender: FDA-Public Use
  Company Number: US-SANOFI-AVENTIS-2012SA031535

PATIENT
  Sex: Female

DRUGS (2)
  1. APIDRA [Suspect]
     Indication: DIABETES MELLITUS
     Dosage: PUMP AS NEEDED
     Route: 058
     Dates: start: 200807
  2. APIDRA [Suspect]
     Indication: DIABETES MELLITUS
     Dosage: PUMP AS NEEDED
     Route: 058
     Dates: start: 200807

REACTIONS (2)
  - Hyperglycaemia [Recovered/Resolved]
  - Blood glucose decreased [Unknown]
